FAERS Safety Report 4900372-5 (Version None)
Quarter: 2006Q1

REPORT INFORMATION
  Report Type: 
  Country: None (occurrence: None)
  Receive Date: 20060201
  Receipt Date: 20060112
  Transmission Date: 20060701
  Serious: Yes (Other)
  Sender: FDA-Public Use
  Company Number: US200601002244

PATIENT
  Sex: Female

DRUGS (4)
  1. FORTEO [Suspect]
     Indication: OSTEOPOROSIS
     Dates: start: 20050201
  2. FORTEO [Concomitant]
  3. CALCIUM CARBOONATE (CALCIUM CARBONATE) TABLET [Concomitant]
  4. MIACALCIN [Concomitant]

REACTIONS (10)
  - BACK PAIN [None]
  - BONE DENSITY DECREASED [None]
  - DIFFICULTY IN WALKING [None]
  - PAIN [None]
  - PAIN IN EXTREMITY [None]
  - PELVIC FRACTURE [None]
  - PHARMACEUTICAL PRODUCT COMPLAINT [None]
  - RADIATION ASSOCIATED PAIN [None]
  - SHOULDER PAIN [None]
  - SPINAL DISORDER [None]
